FAERS Safety Report 5134394-9 (Version None)
Quarter: 2006Q4

REPORT INFORMATION
  Report Type: 
  Country: None (occurrence: None)
  Receive Date: 20061025
  Receipt Date: 20060706
  Transmission Date: 20070319
  Serious: Yes (Disabling, Other)
  Sender: FDA-Public Use
  Company Number: 2006UW15958

PATIENT
  Age: 53 Year
  Sex: Female

DRUGS (4)
  1. ZOMIG [Suspect]
     Indication: MIGRAINE
     Dosage: 4 TO 6 TABS A MONTH
     Route: 048
  2. PROPRANOLOL [Concomitant]
     Indication: ILL-DEFINED DISORDER
     Dates: start: 20050401
  3. FLUOXETINE [Concomitant]
     Indication: ILL-DEFINED DISORDER
     Dates: start: 20050401
  4. IMITREX [Concomitant]

REACTIONS (8)
  - ANOREXIA [None]
  - BLINDNESS [None]
  - DISABILITY [None]
  - HOT FLUSH [None]
  - NAUSEA [None]
  - PAIN [None]
  - PANIC ATTACK [None]
  - VISUAL DISTURBANCE [None]
